FAERS Safety Report 18596228 (Version 4)
Quarter: 2023Q4

REPORT INFORMATION
  Report Type: Spontaneous
  Country: US (occurrence: US)
  Receive Date: 20201209
  Receipt Date: 20231025
  Transmission Date: 20240109
  Serious: No
  Sender: FDA-Public Use
  Company Number: US-PFIZER INC-2020484687

PATIENT
  Age: 74 Year
  Sex: Female
  Weight: 54.422 kg

DRUGS (5)
  1. METHOTREXATE SODIUM [Suspect]
     Active Substance: METHOTREXATE SODIUM
     Dosage: WEEKLY (SHOT ONCE A WEEK)
     Dates: start: 1998, end: 2012
  2. AMLODIPINE [Concomitant]
     Active Substance: AMLODIPINE BESYLATE
     Indication: Blood pressure abnormal
     Dosage: 2.5 MG, DAILY (LOW DOSE)
     Dates: start: 2015
  3. LEVOTHYROXINE [Concomitant]
     Active Substance: LEVOTHYROXINE
     Indication: Thyroid disorder
     Dosage: 125 UG, 1X/DAY (HALF TABLET ONCE A DAY)
     Dates: start: 1972
  4. VITAMIN C [Concomitant]
     Active Substance: ASCORBIC ACID
     Dosage: UNK
     Dates: start: 2014
  5. ORENCIA [Concomitant]
     Active Substance: ABATACEPT
     Dosage: UNK, MONTHLY
     Dates: start: 2015, end: 2023

REACTIONS (2)
  - Cough [Unknown]
  - Respiratory disorder [Recovered/Resolved]

NARRATIVE: CASE EVENT DATE: 20080101
